FAERS Safety Report 15116520 (Version 2)
Quarter: 2018Q3

REPORT INFORMATION
  Report Type: Spontaneous
  Country: FR (occurrence: FR)
  Receive Date: 20180706
  Receipt Date: 20180830
  Transmission Date: 20181010
  Serious: Yes (Death, Other)
  Sender: FDA-Public Use
  Company Number: FR-PFIZER INC-2018268060

PATIENT
  Age: 94 Year
  Sex: Female

DRUGS (1)
  1. CEFTAZIDIME. [Suspect]
     Active Substance: CEFTAZIDIME
     Indication: SUPERINFECTION
     Dosage: 1 G, 1X/DAY
     Route: 042
     Dates: start: 20140228, end: 20140309

REACTIONS (3)
  - Electrolyte imbalance [Fatal]
  - Pseudomembranous colitis [Recovering/Resolving]
  - Arrhythmia [Fatal]

NARRATIVE: CASE EVENT DATE: 20140312
